FAERS Safety Report 19452717 (Version 2)
Quarter: 2022Q3

REPORT INFORMATION
  Report Type: Spontaneous
  Country: US (occurrence: US)
  Receive Date: 20210623
  Receipt Date: 20220910
  Transmission Date: 20221027
  Serious: Yes (Death, Other)
  Sender: FDA-Public Use
  Company Number: US-SA-SAC20210621000813

PATIENT
  Age: 70 Year
  Sex: Male

DRUGS (1)
  1. ZANTAC [Suspect]
     Active Substance: RANITIDINE HYDROCHLORIDE
     Indication: Dyspepsia
     Dosage: UNKNOWN AT THIS TIME, QD
     Dates: start: 199501, end: 201412

REACTIONS (4)
  - Oesophageal carcinoma [Fatal]
  - Hepatic cancer [Fatal]
  - Gastric cancer [Fatal]
  - Oesophageal cancer metastatic [Fatal]

NARRATIVE: CASE EVENT DATE: 20140614
